FAERS Safety Report 5397006-5 (Version None)
Quarter: 2007Q3

REPORT INFORMATION
  Report Type: 
  Country: None (occurrence: None)
  Receive Date: 20070725
  Receipt Date: 20070719
  Transmission Date: 20080115
  Serious: Yes (Hospitalization)
  Sender: FDA-Public Use
  Company Number: ES-ROXANE LABORATORIES, INC-2007-BP-17798RO

PATIENT
  Sex: Male
  Weight: 2.965 kg

DRUGS (1)
  1. ALPRAZOLAM [Suspect]
     Indication: ANXIETY
     Dosage: TRANSPLACENTAL EXPOSURE FROM MOTHER
     Route: 064

REACTIONS (5)
  - DRUG WITHDRAWAL SYNDROME NEONATAL [None]
  - HYPERTONIA [None]
  - IRRITABILITY [None]
  - RESPIRATORY DISTRESS [None]
  - SEPSIS NEONATAL [None]
